FAERS Safety Report 24917950 (Version 1)
Quarter: 2025Q1

REPORT INFORMATION
  Report Type: Spontaneous
  Country: US (occurrence: None)
  Receive Date: 20250203
  Receipt Date: 20250203
  Transmission Date: 20250409
  Serious: No
  Sender: FDA-CTU
  Company Number: None

PATIENT

DRUGS (1)
  1. TYSABRI [Suspect]
     Active Substance: NATALIZUMAB

REACTIONS (9)
  - Chills [None]
  - Headache [None]
  - Infusion related reaction [None]
  - Nausea [None]
  - Vomiting [None]
  - Abdominal pain [None]
  - Hypertension [None]
  - Skin discolouration [None]
  - Refusal of treatment by patient [None]
